FAERS Safety Report 6458944-5 (Version None)
Quarter: 2009Q4

REPORT INFORMATION
  Report Type: 
  Country: None (occurrence: None)
  Receive Date: 20091125
  Receipt Date: 20091125
  Transmission Date: 20100525
  Serious: Yes (Hospitalization)
  Sender: FDA-Public Use
  Company Number: None

PATIENT
  Sex: Female
  Weight: 56.246 kg

DRUGS (5)
  1. TOPIRAMATE [Suspect]
     Indication: CONVULSION
     Dosage: TOPIRAMATE 100MG BID PO
     Route: 048
     Dates: start: 20090601
  2. NEXIUM [Concomitant]
  3. BUSPIRONE HCL [Concomitant]
  4. SERTRALINE HCL [Concomitant]
  5. TRAZODONE HCL [Concomitant]

REACTIONS (2)
  - CONVULSION [None]
  - PRODUCT SUBSTITUTION ISSUE [None]
